FAERS Safety Report 18608878 (Version 1)
Quarter: 2020Q4

REPORT INFORMATION
  Report Type: Spontaneous
  Country: US (occurrence: US)
  Receive Date: 20201213
  Receipt Date: 20201213
  Transmission Date: 20210114
  Serious: No
  Sender: FDA-Public Use
  Company Number: US-ELI_LILLY_AND_COMPANY-US202012001746

PATIENT
  Sex: Female

DRUGS (1)
  1. HUMALOG [Suspect]
     Active Substance: INSULIN LISPRO
     Indication: TYPE 1 DIABETES MELLITUS
     Dosage: 1 UNIT OF INSULIN FOR EVERY 6 CARBS IN THE MORNING AND AT LUNCH 1 UNIT FOR EVERY 7 CARBS
     Route: 058
     Dates: start: 202006

REACTIONS (1)
  - Blood glucose increased [Recovered/Resolved]
